FAERS Safety Report 4439576-7 (Version None)
Quarter: 2004Q3

REPORT INFORMATION
  Report Type: 
  Country: None (occurrence: None)
  Receive Date: 20040902
  Receipt Date: 20040804
  Transmission Date: 20050211
  Serious: Yes (Hospitalization)
  Sender: FDA-Public Use
  Company Number: AU-BRISTOL-MYERS SQUIBB COMPANY-12661120

PATIENT
  Age: 51 Year
  Sex: Male
  Weight: 74 kg

DRUGS (2)
  1. CETUXIMAB [Suspect]
     Indication: COLORECTAL CANCER METASTATIC
     Dosage: INITIAL TX DATE: 18-JUN-04. PT REC'D 7 DOSES AT THE TIME OF THE EVENT.
     Route: 042
     Dates: start: 20040716, end: 20040716
  2. DIAMICRON [Concomitant]
     Indication: DIABETES MELLITUS NON-INSULIN-DEPENDENT
     Dosage: PRE-2001.

REACTIONS (3)
  - DUODENAL ULCER [None]
  - DYSPEPSIA [None]
  - PYREXIA [None]
